FAERS Safety Report 7642391-4 (Version None)
Quarter: 2011Q3

REPORT INFORMATION
  Report Type: 
  Country: None (occurrence: None)
  Receive Date: 20110728
  Receipt Date: 20110722
  Transmission Date: 20111222
  Serious: Yes (Death)
  Sender: FDA-Public Use
  Company Number: DK-ROXANE LABORATORIES, INC.-2011-RO-01051RO

PATIENT
  Age: 48 Year

DRUGS (5)
  1. PHENYTOIN [Suspect]
  2. AMLODIPINE [Suspect]
  3. LEVETIRACETAM [Suspect]
  4. AMITRIPTYLINE HCL [Suspect]
  5. NORTRIPTYLINE HCL [Suspect]

REACTIONS (4)
  - PNEUMONIA [None]
  - EPILEPSY [None]
  - DEATH [None]
  - PSYCHOTIC DISORDER [None]
